FAERS Safety Report 21476272 (Version 1)
Quarter: 2022Q4

REPORT INFORMATION
  Report Type: Report from Study
  Country: ES (occurrence: ES)
  Receive Date: 20221019
  Receipt Date: 20221019
  Transmission Date: 20230112
  Serious: Yes (Death, Other)
  Sender: FDA-Public Use
  Company Number: ES-JNJFOC-20221025298

PATIENT

DRUGS (1)
  1. IBRUTINIB [Suspect]
     Active Substance: IBRUTINIB
     Indication: B-cell lymphoma
     Route: 048

REACTIONS (8)
  - Cardiovascular disorder [Fatal]
  - Thrombocytopenia [Unknown]
  - Cardiac failure [Unknown]
  - Atrial fibrillation [Unknown]
  - Cerebrovascular accident [Unknown]
  - Ventricular arrhythmia [Unknown]
  - Haemorrhage [Unknown]
  - Hypertension [Unknown]
